FAERS Safety Report 12090993 (Version 3)
Quarter: 2016Q2

REPORT INFORMATION
  Report Type: Spontaneous
  Country: JP (occurrence: JP)
  Receive Date: 20160218
  Receipt Date: 20160428
  Transmission Date: 20160815
  Serious: Yes (Death, Other)
  Sender: FDA-Public Use
  Company Number: JP-ASTRAZENECA-2016SE16571

PATIENT
  Age: 51 Year
  Sex: Male
  Weight: 73 kg

DRUGS (7)
  1. MEROPENEM. [Suspect]
     Active Substance: MEROPENEM
     Indication: FEBRILE NEUTROPENIA
     Route: 042
     Dates: start: 20150516, end: 20150601
  2. CYTARABINE. [Concomitant]
     Active Substance: CYTARABINE
     Route: 065
  3. ETOPOSIDE. [Concomitant]
     Active Substance: ETOPOSIDE
     Route: 065
  4. RITUXAN [Concomitant]
     Active Substance: RITUXIMAB
     Route: 065
  5. CUBICIN [Suspect]
     Active Substance: DAPTOMYCIN
     Indication: FEBRILE NEUTROPENIA
     Route: 042
     Dates: start: 20150523, end: 20150601
  6. CISPLATIN. [Concomitant]
     Active Substance: CISPLATIN
     Route: 065
  7. METHYLPREDNISOLONE. [Concomitant]
     Active Substance: METHYLPREDNISOLONE
     Route: 065

REACTIONS (3)
  - Pneumonia [Fatal]
  - Sepsis [Fatal]
  - Stenotrophomonas infection [Fatal]

NARRATIVE: CASE EVENT DATE: 20150602
